FAERS Safety Report 8262503-1 (Version None)
Quarter: 2012Q1

REPORT INFORMATION
  Report Type: 
  Country: None (occurrence: None)
  Receive Date: 20120321
  Receipt Date: 20111027
  Transmission Date: 20120608
  Serious: Yes (Other)
  Sender: FDA-Public Use
  Company Number: 2011SP046289

PATIENT
  Sex: Male

DRUGS (8)
  1. ALLEGRA D 24 HOUR [Concomitant]
  2. GLYBURIDE [Concomitant]
  3. METFORMIN HCL [Concomitant]
  4. PAXIL [Concomitant]
  5. NIFEDIAC [Concomitant]
  6. PEGINTERFERON ALFA-2B [Suspect]
     Indication: MALIGNANT MELANOMA
     Dosage: 296 MCG; BIW;SC ; 296 MCG; QW;SC
     Route: 058
     Dates: start: 20111003
  7. PEGINTERFERON ALFA-2B [Suspect]
     Indication: MALIGNANT MELANOMA
     Dosage: 296 MCG; BIW;SC ; 296 MCG; QW;SC
     Route: 058
     Dates: start: 20110919, end: 20110924
  8. DIOVAN [Concomitant]

REACTIONS (3)
  - NEUTROPENIA [None]
  - PLATELET COUNT DECREASED [None]
  - PSYCHOTIC DISORDER [None]
